FAERS Safety Report 7817224-3 (Version None)
Quarter: 2011Q4

REPORT INFORMATION
  Report Type: 
  Country: None (occurrence: None)
  Receive Date: 20111017
  Receipt Date: 20111013
  Transmission Date: 20120403
  Serious: Yes (Death, Other)
  Sender: FDA-Public Use
  Company Number: PHHY2011DE49952

PATIENT
  Sex: Female
  Weight: 57.6 kg

DRUGS (4)
  1. ZOMETA [Suspect]
     Dosage: 4 MG, EVERY 4 WEEKS
     Route: 042
     Dates: start: 20110426
  2. LAPATINIB [Concomitant]
     Dosage: 1250 MG, UNK
     Dates: start: 20100623
  3. ZOMETA [Suspect]
     Indication: BONE DISORDER
     Dosage: 4 MG EVERY 4 WEEKS
     Route: 042
     Dates: start: 20100517
  4. XELODA [Concomitant]
     Dosage: 3200 MG, UNK
     Dates: start: 20100623

REACTIONS (7)
  - GENERAL PHYSICAL HEALTH DETERIORATION [None]
  - PLEURAL EFFUSION [None]
  - DYSPNOEA [None]
  - METASTASES TO BONE [None]
  - NEOPLASM MALIGNANT [None]
  - NEOPLASM PROGRESSION [None]
  - METASTASES TO LIVER [None]
